FAERS Safety Report 8770148 (Version 2)
Quarter: 2012Q4

REPORT INFORMATION
  Report Type: 
  Country: US (occurrence: US)
  Receive Date: 20120905
  Receipt Date: 20121012
  Transmission Date: 20130627
  Serious: No
  Sender: FDA-Public Use
  Company Number: US-009507513-1208USA001665

PATIENT
  Age: 23 Year
  Sex: Female
  Weight: 96.15 kg

DRUGS (5)
  1. NEXPLANON [Suspect]
     Indication: CONTRACEPTION
     Dosage: UNK
     Route: 059
     Dates: start: 20120613, end: 20120815
  2. ATENOLOL [Concomitant]
  3. CALCIUM STEARATE [Concomitant]
  4. RANITIDINE [Concomitant]
  5. LORATADINE [Concomitant]

REACTIONS (3)
  - Alopecia [Not Recovered/Not Resolved]
  - Implant site pain [Not Recovered/Not Resolved]
  - Device breakage [Recovered/Resolved]
